FAERS Safety Report 18904126 (Version 1)
Quarter: 2021Q1

REPORT INFORMATION
  Report Type: Spontaneous
  Country: CA (occurrence: CA)
  Receive Date: 20210217
  Receipt Date: 20210217
  Transmission Date: 20210420
  Serious: Yes (Other)
  Sender: FDA-Public Use
  Company Number: CA-DRREDDYS-USA/CAN/21/0132027

PATIENT
  Age: 64 Year
  Sex: Female

DRUGS (2)
  1. BORTEZOMIB FOR INJECTION 3.5 MG/VIAL [Concomitant]
     Active Substance: BORTEZOMIB
     Indication: PRODUCT USED FOR UNKNOWN INDICATION
  2. BORTEZOMIB FOR INJECTION 3.5 MG/VIAL [Suspect]
     Active Substance: BORTEZOMIB
     Indication: PLASMA CELL MYELOMA
     Route: 058

REACTIONS (1)
  - Chalazion [Unknown]
